FAERS Safety Report 7829771-9 (Version None)
Quarter: 2011Q4

REPORT INFORMATION
  Report Type: 
  Country: None (occurrence: None)
  Receive Date: 20111021
  Receipt Date: 20111016
  Transmission Date: 20120403
  Serious: Yes (Hospitalization, Other)
  Sender: FDA-Public Use
  Company Number: US-ABBOTT-11P-163-0865917-00

PATIENT
  Sex: Female

DRUGS (4)
  1. UNKNOWN DIABETES MEDICATIONS [Concomitant]
     Indication: DIABETES MELLITUS
  2. HUMIRA [Suspect]
     Indication: PSORIASIS
     Route: 058
     Dates: end: 20090401
  3. UNKNOWN LOTIONS FOR PSORIASIS [Concomitant]
     Indication: PSORIASIS
  4. UNKNOWN DIURETIC [Concomitant]
     Indication: PRODUCT USED FOR UNKNOWN INDICATION

REACTIONS (6)
  - ATRIAL FIBRILLATION [None]
  - OEDEMA [None]
  - CARDIAC FAILURE CONGESTIVE [None]
  - NAUSEA [None]
  - CORONARY ARTERY EMBOLISM [None]
  - KNEE ARTHROPLASTY [None]
